FAERS Safety Report 4935284-4 (Version None)
Quarter: 2006Q1

REPORT INFORMATION
  Report Type: 
  Country: None (occurrence: None)
  Receive Date: 20060307
  Receipt Date: 20060227
  Transmission Date: 20060701
  Serious: Yes (Other)
  Sender: FDA-Public Use
  Company Number: US-BRISTOL-MYERS SQUIBB COMPANY-13301395

PATIENT

DRUGS (1)
  1. COUMADIN [Suspect]

REACTIONS (3)
  - ANTIPHOSPHOLIPID SYNDROME [None]
  - CEREBROVASCULAR ACCIDENT [None]
  - INTERNATIONAL NORMALISED RATIO FLUCTUATION [None]
